FAERS Safety Report 10512212 (Version 2)
Quarter: 2015Q4

REPORT INFORMATION
  Report Type: Spontaneous
  Country: BR (occurrence: BR)
  Receive Date: 20141010
  Receipt Date: 20151021
  Transmission Date: 20160304
  Serious: Yes (Other)
  Sender: FDA-Public Use
  Company Number: BR-ALEXION PHARMACEUTICALS INC-A201403821

PATIENT
  Age: 61 Year
  Sex: Male

DRUGS (3)
  1. K+ FENOXIMETILPENICILLINE [Concomitant]
     Indication: PROPHYLAXIS
     Dosage: 500 MG, UNK
     Route: 048
     Dates: start: 20131010
  2. SOLIRIS [Suspect]
     Active Substance: ECULIZUMAB
     Indication: PAROXYSMAL NOCTURNAL HAEMOGLOBINURIA
     Dosage: 900 MG, Q2W
     Route: 042
     Dates: start: 20120420, end: 20130426
  3. SOLIRIS [Suspect]
     Active Substance: ECULIZUMAB
     Dosage: 900 MG, Q2W
     Route: 042
     Dates: start: 20130527

REACTIONS (9)
  - Intentional product misuse [Recovered/Resolved]
  - Hiatus hernia [Recovered/Resolved]
  - Acute myocardial infarction [Unknown]
  - Haemorrhoids thrombosed [Unknown]
  - Haemoglobinuria [Recovered/Resolved]
  - Blood lactate dehydrogenase abnormal [Unknown]
  - Haemolysis [Unknown]
  - Food poisoning [Unknown]
  - Haemolysis [Unknown]

NARRATIVE: CASE EVENT DATE: 20120625
